FAERS Safety Report 18179179 (Version 1)
Quarter: 2020Q3

REPORT INFORMATION
  Report Type: Spontaneous
  Country: FR (occurrence: FR)
  Receive Date: 20200821
  Receipt Date: 20200821
  Transmission Date: 20201103
  Serious: Yes (Hospitalization)
  Sender: FDA-Public Use
  Company Number: FR-SUN PHARMACEUTICAL INDUSTRIES LTD-2020R1-257782

PATIENT
  Age: 30 Year
  Sex: Female
  Weight: 41 kg

DRUGS (5)
  1. OXYCODONE [Suspect]
     Active Substance: OXYCODONE
     Indication: PROCEDURAL PAIN
     Dosage: 4 MILLIGRAM, QID
     Route: 065
  2. MORPHINE [Suspect]
     Active Substance: MORPHINE
     Dosage: UNK (MEAN DOSE OF 50 MG OF OXYNORM PER DAY)
     Route: 042
  3. NEFOPAM [Suspect]
     Active Substance: NEFOPAM
     Indication: PROCEDURAL PAIN
     Dosage: 120 MILLIGRAM, DAILY
     Route: 042
  4. MORPHINE [Suspect]
     Active Substance: MORPHINE
     Indication: PROCEDURAL PAIN
     Dosage: UNK
     Route: 048
  5. ATOSIBAN [Suspect]
     Active Substance: ATOSIBAN
     Indication: UTERINE CONTRACTIONS DURING PREGNANCY
     Dosage: UNK
     Route: 065

REACTIONS (2)
  - Premature delivery [Unknown]
  - Exposure during pregnancy [Unknown]
